FAERS Safety Report 4568104-0 (Version None)
Quarter: 2005Q1

REPORT INFORMATION
  Report Type: 
  Country: None (occurrence: None)
  Receive Date: 20050131
  Receipt Date: 20050119
  Transmission Date: 20050727
  Serious: Yes (Other)
  Sender: FDA-Public Use
  Company Number: 2005016761

PATIENT
  Sex: Female
  Weight: 85 kg

DRUGS (1)
  1. LINEZOLID SUSPENSION, ORAL (LINEZOLID) [Suspect]
     Indication: ENTEROBACTER INFECTION
     Dosage: ORAL
     Route: 048
     Dates: start: 20050101

REACTIONS (6)
  - DRUG INEFFECTIVE [None]
  - MEDICAL DEVICE COMPLICATION [None]
  - NAUSEA [None]
  - POLYNEUROPATHY [None]
  - VOMITING [None]
  - WEIGHT DECREASED [None]
